FAERS Safety Report 8593641-1 (Version None)
Quarter: 2012Q3

REPORT INFORMATION
  Report Type: 
  Country: None (occurrence: None)
  Receive Date: 20120814
  Receipt Date: 20120807
  Transmission Date: 20120928
  Serious: Yes (Hospitalization)
  Sender: FDA-Public Use
  Company Number: CA-B.I. PHARMACEUTICALS,INC./RIDGEFIELD-2012-CN-01671CN

PATIENT

DRUGS (1)
  1. PRADAXA [Suspect]
     Dates: start: 20120101

REACTIONS (1)
  - CEREBROVASCULAR ACCIDENT [None]
